FAERS Safety Report 8622340-2 (Version None)
Quarter: 2012Q3

REPORT INFORMATION
  Report Type: 
  Country: None (occurrence: None)
  Receive Date: 20120827
  Receipt Date: 20120822
  Transmission Date: 20120928
  Serious: Yes (Hospitalization, Other)
  Sender: FDA-Public Use
  Company Number: JP-009507513-1208JPN000369

PATIENT

DRUGS (18)
  1. PEG-INTRON [Suspect]
     Indication: HEPATITIS C
     Dosage: 1.5 MICROGRAM PER KILOGRAM, QW
     Route: 058
     Dates: start: 20120427
  2. TELAVIC [Suspect]
     Indication: HEPATITIS C
     Dosage: 1500 MG, QD
     Route: 048
     Dates: start: 20120427, end: 20120517
  3. ANTEBATE [Concomitant]
     Indication: DERMATITIS
     Dosage: AS-NEEDED
     Route: 061
  4. REBETOL [Suspect]
     Indication: HEPATITIS C
     Dosage: 400 MG, QD
     Route: 048
     Dates: start: 20120427, end: 20120524
  5. REBETOL [Suspect]
     Dosage: 200 MG, QD
     Route: 048
     Dates: start: 20120525
  6. PREDNISOLONE [Concomitant]
     Indication: DERMATITIS
     Dosage: AS-NEEDED
     Route: 061
  7. DEXALTIN [Concomitant]
     Indication: STOMATITIS
     Dosage: AS-NEEDED
     Route: 061
  8. UBIRON [Concomitant]
     Indication: HEPATITIS C
     Dosage: 300 MG, QD; FORMULATION POR
     Route: 048
  9. ASPARA CA [Concomitant]
     Indication: OSTEOPOROSIS
     Dosage: 600 MG, QD
     Route: 048
  10. LOXONIN [Concomitant]
     Indication: PROPHYLAXIS
     Dosage: 60 MG, QD AS NEEDED; FORMULATION POR
     Route: 048
     Dates: start: 20120427
  11. ONEALFA [Concomitant]
     Indication: OSTEOPOROSIS
     Dosage: 1 MICROGRAM, QD; FORMULATION POR
     Route: 048
  12. DIOVAN [Concomitant]
     Indication: HYPERTENSION
     Dosage: 160 MG, QD AS NEEDED; FORMULATION POR
     Route: 048
  13. BERIZYM (LYSOZYME CHLORIDE) [Concomitant]
     Indication: GASTRITIS
     Dosage: 3 G, QD
     Route: 048
  14. MIROBECT [Concomitant]
     Indication: ARRHYTHMIA
     Dosage: 50 MG, QD; FORMULATION POR
     Route: 048
  15. AMLODIPINE [Concomitant]
     Indication: HYPERTENSION
     Dosage: 10 MG, QD; FORMULATION POR
     Route: 048
  16. ISOLEUCINE (+) LEUCINE (+) VALINE [Concomitant]
     Indication: HEPATITIS C
     Dosage: 12.45 G, QD
     Route: 048
  17. LANSOPRAZOLE [Concomitant]
     Indication: GASTRITIS
     Dosage: 30 MG, QD; FORMULATION POR
     Route: 048
  18. MUCOSTA [Concomitant]
     Indication: PROPHYLAXIS
     Dosage: 100 MG, QD AS NEEDED; FORMULATION POR
     Route: 048
     Dates: start: 20120427

REACTIONS (3)
  - RENAL IMPAIRMENT [None]
  - ANAEMIA [None]
  - PANCREATITIS [None]
